FAERS Safety Report 4951485-3 (Version None)
Quarter: 2006Q1

REPORT INFORMATION
  Report Type: 
  Country: None (occurrence: None)
  Receive Date: 20060317
  Receipt Date: 20060306
  Transmission Date: 20060701
  Serious: Yes (Death, Hospitalization)
  Sender: FDA-Public Use
  Company Number: US200603001568

PATIENT
  Age: 59 Year
  Sex: Female

DRUGS (1)
  1. HUMAN INSULIN (RDNA ORIGIN)(HUMAN INSULIN (RDNA ORIGIN) UNKNOWN FORMUL [Suspect]
     Indication: DIABETES MELLITUS
     Dates: start: 19970101

REACTIONS (1)
  - PNEUMONIA [None]
